FAERS Safety Report 20222193 (Version 2)
Quarter: 2022Q1

REPORT INFORMATION
  Report Type: Spontaneous
  Country: CZ (occurrence: CZ)
  Receive Date: 20211223
  Receipt Date: 20220309
  Transmission Date: 20220423
  Serious: Yes (Other)
  Sender: FDA-Public Use
  Company Number: CZ-EMA-DD-20211214-varghese_v-125521

PATIENT
  Age: 67 Year
  Sex: Male

DRUGS (8)
  1. OXALIPLATIN [Suspect]
     Active Substance: OXALIPLATIN
     Indication: Rectal adenocarcinoma
     Dosage: UNK
     Route: 062
     Dates: start: 201802
  2. OXALIPLATIN [Suspect]
     Active Substance: OXALIPLATIN
     Indication: Metastases to liver
  3. VECTIBIX [Concomitant]
     Active Substance: PANITUMUMAB
     Indication: Rectal adenocarcinoma
     Dosage: UNK, (ANTI-EGFR PANITUMUMAB THERAPY)
     Route: 062
     Dates: start: 201802
  4. VECTIBIX [Concomitant]
     Active Substance: PANITUMUMAB
     Indication: Metastases to liver
  5. LEUCOVORIN [Concomitant]
     Active Substance: LEUCOVORIN
     Indication: Rectal adenocarcinoma
     Dosage: UNK
     Route: 062
     Dates: start: 201802
  6. LEUCOVORIN [Concomitant]
     Active Substance: LEUCOVORIN
     Indication: Metastases to liver
  7. FLUOROURACIL [Concomitant]
     Active Substance: FLUOROURACIL
     Indication: Rectal adenocarcinoma
     Dosage: UNK
     Route: 062
     Dates: start: 201802
  8. FLUOROURACIL [Concomitant]
     Active Substance: FLUOROURACIL
     Indication: Metastases to liver

REACTIONS (1)
  - Neurotoxicity [Unknown]

NARRATIVE: CASE EVENT DATE: 20180101
